FAERS Safety Report 7983798-5 (Version None)
Quarter: 2011Q4

REPORT INFORMATION
  Report Type: 
  Country: None (occurrence: None)
  Receive Date: 20111216
  Receipt Date: 20111205
  Transmission Date: 20120403
  Serious: Yes (Hospitalization)
  Sender: FDA-Public Use
  Company Number: GB-AMGEN-GBRCT2011065820

PATIENT
  Age: 15 Year
  Sex: Male
  Weight: 55 kg

DRUGS (6)
  1. TRIAMCINOLONE HEXACETONIDE [Concomitant]
     Dosage: 4.00 (BOTH KNEES)
     Dates: start: 20100601
  2. KENALOG [Concomitant]
     Dosage: UNK
     Dates: start: 20090101
  3. ETANERCEPT [Suspect]
     Indication: JUVENILE ARTHRITIS
     Dosage: 25 MG, 2 TIMES/WK
     Route: 058
     Dates: start: 20100527, end: 20101115
  4. ETANERCEPT [Suspect]
     Dosage: 50 MG, QWK
     Dates: start: 20101115
  5. PREDNISOLONE [Concomitant]
     Dosage: UNK
     Route: 048
     Dates: start: 20100601
  6. PIROXICAM [Concomitant]
     Dosage: 20 MG, AS NEEDED AT NIGHT
     Route: 048
     Dates: start: 20100601

REACTIONS (1)
  - JUVENILE ARTHRITIS [None]
